FAERS Safety Report 7496202-0 (Version None)
Quarter: 2011Q2

REPORT INFORMATION
  Report Type: 
  Country: None (occurrence: None)
  Receive Date: 20110513
  Receipt Date: 20110504
  Transmission Date: 20111010
  Serious: Yes (Congenital Anomaly)
  Sender: FDA-Public Use
  Company Number: 909626

PATIENT
  Sex: Female

DRUGS (1)
  1. METHOTREXATE [Suspect]
     Dosage: TRANSPLACENTAL
     Route: 064

REACTIONS (12)
  - PULMONARY ARTERY ATRESIA [None]
  - CONGENITAL HYDRONEPHROSIS [None]
  - VENTRICULAR SEPTAL DEFECT [None]
  - RENAL DYSPLASIA [None]
  - INTESTINAL MALROTATION [None]
  - EXTERNAL AUDITORY CANAL ATRESIA [None]
  - MATERNAL DRUGS AFFECTING FOETUS [None]
  - CONGENITAL ARTERIAL MALFORMATION [None]
  - FOETAL METHOTREXATE SYNDROME [None]
  - MICROGNATHIA [None]
  - CONGENITAL CYSTIC KIDNEY DISEASE [None]
  - RESPIRATORY SYNCYTIAL VIRUS INFECTION [None]
